FAERS Safety Report 9652105 (Version 1)
Quarter: 2013Q4

REPORT INFORMATION
  Report Type: Spontaneous
  Country: IT (occurrence: None)
  Receive Date: 20131025
  Receipt Date: 20131025
  Transmission Date: 20140711
  Serious: Yes (Hospitalization)
  Sender: FDA-Public Use
  Company Number: IT-013325

PATIENT
  Age: 4 Year
  Sex: Male

DRUGS (1)
  1. MINIRIN\DDAVP [Suspect]
     Indication: ENURESIS
     Dates: start: 20130902, end: 20130909

REACTIONS (4)
  - Abdominal pain [None]
  - Headache [None]
  - Malaise [None]
  - Supraventricular extrasystoles [None]
